FAERS Safety Report 11814084 (Version 1)
Quarter: 2015Q4

REPORT INFORMATION
  Report Type: Spontaneous
  Country: FR (occurrence: FR)
  Receive Date: 20151209
  Receipt Date: 20151209
  Transmission Date: 20160305
  Serious: Yes (Hospitalization)
  Sender: FDA-Public Use
  Company Number: FR-SA-2015SA205511

PATIENT
  Sex: Male

DRUGS (9)
  1. SEROPLEX [Suspect]
     Active Substance: ESCITALOPRAM OXALATE
     Route: 048
     Dates: end: 201506
  2. CHIBRO-PROSCAR [Suspect]
     Active Substance: FINASTERIDE
     Route: 048
  3. LASILIX [Suspect]
     Active Substance: FUROSEMIDE
     Route: 048
  4. TAREG [Suspect]
     Active Substance: VALSARTAN
     Route: 048
  5. PREVISCAN [Suspect]
     Active Substance: FLUINDIONE
     Route: 048
  6. INEGY [Suspect]
     Active Substance: EZETIMIBE\SIMVASTATIN
     Route: 048
  7. AMIODARONE [Suspect]
     Active Substance: AMIODARONE
     Route: 048
     Dates: end: 201506
  8. NOVONORM [Suspect]
     Active Substance: REPAGLINIDE
     Route: 048
  9. BISOPROLOL FUMARATE. [Suspect]
     Active Substance: BISOPROLOL FUMARATE
     Route: 048

REACTIONS (1)
  - Psoriasis [Not Recovered/Not Resolved]

NARRATIVE: CASE EVENT DATE: 201506
